FAERS Safety Report 7635461-8 (Version None)
Quarter: 2011Q3

REPORT INFORMATION
  Report Type: 
  Country: None (occurrence: None)
  Receive Date: 20110726
  Receipt Date: 20110726
  Transmission Date: 20111222
  Serious: Yes (Death)
  Sender: FDA-Public Use
  Company Number: None

PATIENT
  Sex: Female

DRUGS (2)
  1. SEROQUEL XR [Suspect]
     Dosage: ONE TABLET
     Route: 048
  2. METHADON AMIDONE HCL TAB [Concomitant]

REACTIONS (3)
  - SUDDEN DEATH [None]
  - NEUTROPENIA [None]
  - ARRHYTHMIA [None]
